FAERS Safety Report 8227746-1 (Version None)
Quarter: 2012Q1

REPORT INFORMATION
  Report Type: 
  Country: None (occurrence: None)
  Receive Date: 20120322
  Receipt Date: 20120320
  Transmission Date: 20120608
  Serious: Yes (Other)
  Sender: FDA-Public Use
  Company Number: US-BAYER-2012-027641

PATIENT
  Age: 74 Year
  Sex: Female
  Weight: 50 kg

DRUGS (6)
  1. NAPROXEN (ALEVE) [Suspect]
     Indication: ARTHRITIS
     Dosage: BOTTLE COUNT 80
     Route: 048
     Dates: start: 20110801
  2. TYLENOL [Concomitant]
  3. PREMARIN [Concomitant]
  4. TRIAMETER [Concomitant]
  5. DILTIAZEM HCL [Concomitant]
  6. ASPIRIN [Suspect]
     Indication: ISCHAEMIC HEART DISEASE PROPHYLAXIS
     Dosage: 1 DF, QD
     Route: 048
     Dates: start: 20120316, end: 20120319

REACTIONS (1)
  - HAEMATOCHEZIA [None]
